FAERS Safety Report 23814179 (Version 1)
Quarter: 2024Q2

REPORT INFORMATION
  Report Type: Spontaneous
  Country: US (occurrence: US)
  Receive Date: 20240503
  Receipt Date: 20240503
  Transmission Date: 20240715
  Serious: No
  Sender: FDA-Public Use
  Company Number: US-SANDOZ-SDZ2024US044784

PATIENT
  Sex: Female

DRUGS (1)
  1. TOBRAMYCIN [Suspect]
     Active Substance: TOBRAMYCIN\TOBRAMYCIN SULFATE
     Indication: Product used for unknown indication
     Dosage: 5 ML
     Route: 065

REACTIONS (3)
  - Condition aggravated [Unknown]
  - Swelling of eyelid [Not Recovered/Not Resolved]
  - Eye pruritus [Not Recovered/Not Resolved]
